FAERS Safety Report 6504539-4 (Version None)
Quarter: 2009Q4

REPORT INFORMATION
  Report Type: 
  Country: None (occurrence: None)
  Receive Date: 20091215
  Receipt Date: 20091211
  Transmission Date: 20100525
  Serious: Yes (Hospitalization)
  Sender: FDA-Public Use
  Company Number: 2009AC000297

PATIENT
  Age: 67 Year
  Sex: Female

DRUGS (46)
  1. DIGOXIN [Suspect]
     Dosage: PO
     Route: 048
     Dates: start: 20070101
  2. ASPIRIN [Concomitant]
  3. COUMADIN [Concomitant]
  4. GLUCOVANCE [Concomitant]
  5. COREG [Concomitant]
  6. LASIX [Concomitant]
  7. LORCET-HD [Concomitant]
  8. FOSINOPRIL SODIUM [Concomitant]
  9. ACULAR [Concomitant]
  10. LISINOPRIL [Concomitant]
  11. GLYBURIDE [Concomitant]
  12. LEVAQUIN [Concomitant]
  13. CIPROFLOXACIN [Concomitant]
  14. PROMETHAZINE [Concomitant]
  15. GEMFIBROZIL [Concomitant]
  16. TEMAZEPAM [Concomitant]
  17. SILVASORB [Concomitant]
  18. SODIUM BICARBONATE [Concomitant]
  19. GABAPENTIN [Concomitant]
  20. KLOR-CON [Concomitant]
  21. OXYCODONE HCL AND ACETAMINOPHEN [Concomitant]
  22. CARVEDILOL [Concomitant]
  23. METOLAZONE [Concomitant]
  24. MUPIROCIN OINTMENT [Concomitant]
  25. AMOXICILLIN [Concomitant]
  26. FLUCONAZOLE [Concomitant]
  27. DOXYCYCLINE [Concomitant]
  28. AMLODIPINE [Concomitant]
  29. TRIMETHO SULFAMETHOX [Concomitant]
  30. POTASSIUM CHLORIDE [Concomitant]
  31. CYANOCOBALAMIN [Concomitant]
  32. MELOXICAM [Concomitant]
  33. HYDROCODONE [Concomitant]
  34. FUROSEMIDE [Concomitant]
  35. GLYBURIDE [Concomitant]
  36. WARFARIN SODIUM [Concomitant]
  37. POTASSIUM [Concomitant]
  38. PROMETHAZINE [Concomitant]
  39. SULFAMETHOXAZOLE AND TRIMETHOPRIM [Concomitant]
  40. MUPIROCIN [Concomitant]
  41. LEVAQUIN [Concomitant]
  42. ACTOS [Concomitant]
  43. PEG [Concomitant]
  44. GLUCOPHAGE [Concomitant]
  45. PROPO-K [Concomitant]
  46. CODEINE [Concomitant]

REACTIONS (18)
  - ACHLORHYDRIA [None]
  - ANAEMIA [None]
  - ANGINA PECTORIS [None]
  - ATRIAL FIBRILLATION [None]
  - BRADYCARDIA [None]
  - CARDIAC FAILURE CONGESTIVE [None]
  - CORONARY ARTERY DISEASE [None]
  - DIABETES MELLITUS [None]
  - DIVERTICULUM [None]
  - HYPERKALAEMIA [None]
  - HYPERTENSION [None]
  - HYPONATRAEMIA [None]
  - MALABSORPTION [None]
  - NEUROPATHY PERIPHERAL [None]
  - RENAL FAILURE ACUTE [None]
  - RENAL FAILURE CHRONIC [None]
  - SINUS BRADYCARDIA [None]
  - THROMBOCYTOPENIA [None]
